FAERS Safety Report 9706019 (Version 1)
Quarter: 2013Q4

REPORT INFORMATION
  Report Type: Spontaneous
  Country: FR (occurrence: FR)
  Receive Date: 20131122
  Receipt Date: 20131122
  Transmission Date: 20140711
  Serious: Yes (Death, Hospitalization)
  Sender: FDA-Public Use
  Company Number: FR-ASTRAZENECA-2013SE85952

PATIENT
  Age: 24284 Day
  Sex: Female

DRUGS (14)
  1. INEXIUM [Suspect]
     Route: 048
  2. METFORMINE [Suspect]
     Route: 048
  3. DOLIPRANE [Suspect]
     Route: 048
  4. DIFFU K [Suspect]
     Route: 048
  5. CRESTOR [Suspect]
     Route: 048
  6. STILNOX [Suspect]
     Route: 048
  7. CIFLOX [Suspect]
     Indication: CYSTITIS
     Route: 048
     Dates: start: 20130817, end: 20130824
  8. LASILIX [Suspect]
     Route: 048
  9. GEMZAR [Suspect]
     Indication: CHOLANGIOCARCINOMA
     Dosage: ONE COURSE PER WEEK FOR THREE WEEKS WITH ONE WEEK BREAK THEN RESTARTED
     Dates: start: 20130812
  10. LOSARTAN [Suspect]
     Route: 048
  11. FOR LAX [Suspect]
     Route: 048
  12. EPREX [Concomitant]
     Dosage: 40000 IU
  13. FERINJECT [Concomitant]
  14. EFFERALGAN CODEINE [Concomitant]

REACTIONS (11)
  - Sepsis [Fatal]
  - Asthenia [Recovered/Resolved]
  - Hyperglycaemia [Unknown]
  - Pneumocystis jirovecii pneumonia [Unknown]
  - Vomiting [Recovered/Resolved]
  - Nausea [Recovered/Resolved]
  - Impaired gastric emptying [Unknown]
  - Dyspnoea [Unknown]
  - Renal failure chronic [Unknown]
  - Anaemia [Unknown]
  - Cholestasis [Unknown]
